FAERS Safety Report 8214317-6 (Version None)
Quarter: 2012Q1

REPORT INFORMATION
  Report Type: 
  Country: None (occurrence: None)
  Receive Date: 20120316
  Receipt Date: 20120308
  Transmission Date: 20120608
  Serious: Yes (Other)
  Sender: FDA-Public Use
  Company Number: JP-JNJFOC-20120305838

PATIENT
  Sex: Male

DRUGS (5)
  1. STELARA [Suspect]
     Route: 058
     Dates: start: 20111116
  2. STELARA [Suspect]
     Indication: PSORIASIS
     Route: 058
     Dates: start: 20120215
  3. STELARA [Suspect]
     Route: 058
     Dates: start: 20110707
  4. EPINASTINE HYDROCHLORIDE [Concomitant]
     Indication: PSORIASIS
     Route: 048
     Dates: start: 20061214
  5. STELARA [Suspect]
     Route: 058
     Dates: start: 20110824

REACTIONS (1)
  - HEPATIC FUNCTION ABNORMAL [None]
